FAERS Safety Report 5051616-3 (Version None)
Quarter: 2006Q3

REPORT INFORMATION
  Report Type: 
  Country: None (occurrence: None)
  Receive Date: 20060714
  Receipt Date: 20060711
  Transmission Date: 20061208
  Serious: Yes (Hospitalization)
  Sender: FDA-Public Use
  Company Number: FR-AVENTIS-200612461FR

PATIENT
  Age: 14 Year
  Sex: Male

DRUGS (4)
  1. FLAGYL [Suspect]
     Route: 048
     Dates: start: 20060603, end: 20060612
  2. PENTASA [Suspect]
     Route: 048
     Dates: start: 20060608, end: 20060612
  3. PENTASA [Suspect]
     Route: 048
     Dates: start: 20060612, end: 20060621
  4. PENTASA [Suspect]
     Route: 054
     Dates: start: 20060612, end: 20060621

REACTIONS (1)
  - PANCREATITIS ACUTE [None]
